FAERS Safety Report 6434992-6 (Version None)
Quarter: 2009Q4

REPORT INFORMATION
  Report Type: 
  Country: None (occurrence: None)
  Receive Date: 20091110
  Receipt Date: 20091027
  Transmission Date: 20100525
  Serious: Yes (Disabling, Other)
  Sender: FDA-Public Use
  Company Number: PHHY2009DK29691

PATIENT
  Sex: Male
  Weight: 69 kg

DRUGS (9)
  1. ACLASTA [Suspect]
     Indication: OSTEOPOROSIS
     Dosage: 5 MG, ONCE/SINGLE
     Dates: start: 20090710
  2. SELO-ZOK [Concomitant]
     Dosage: 25 MG, BID
  3. MAREVAN [Concomitant]
     Dosage: 2.5 MG DAILY
  4. MAREVAN [Concomitant]
     Dosage: VARYING DOSE
  5. DIGOXIN [Concomitant]
     Dosage: 62.5 UG, BID
  6. ZARATOR [Concomitant]
     Dosage: 10 MG, QD
  7. MAGNYL [Concomitant]
     Dosage: 75 MG, QD
  8. TRIMOPAN [Concomitant]
     Dosage: 100 MG, QD
  9. PANTOPRAZOLE [Concomitant]
     Dosage: 40 MG, QD

REACTIONS (5)
  - ARTHRALGIA [None]
  - BONE PAIN [None]
  - DYSPHONIA [None]
  - FATIGUE [None]
  - MALAISE [None]
